FAERS Safety Report 17754478 (Version 2)
Quarter: 2021Q1

REPORT INFORMATION
  Report Type: Spontaneous
  Country: DE (occurrence: DE)
  Receive Date: 20200507
  Receipt Date: 20210205
  Transmission Date: 20210419
  Serious: Yes (Hospitalization, Other)
  Sender: FDA-Public Use
  Company Number: DE-ALKEM LABORATORIES LIMITED-DE-ALKEM-2020-01638

PATIENT
  Age: 15 Year
  Sex: Male

DRUGS (1)
  1. CEFUROXIME AXETIL. [Suspect]
     Active Substance: CEFUROXIME AXETIL
     Indication: GASTROENTERITIS SALMONELLA
     Dosage: 100 MILLIGRAM/KILOGRAM, QD
     Route: 042

REACTIONS (1)
  - Pathogen resistance [Unknown]
